FAERS Safety Report 4518866-3 (Version None)
Quarter: 2004Q4

REPORT INFORMATION
  Report Type: 
  Country: None (occurrence: None)
  Receive Date: 20041201
  Receipt Date: 20041115
  Transmission Date: 20050328
  Serious: Yes (Hospitalization)
  Sender: FDA-Public Use
  Company Number: 210436

PATIENT
  Age: 54 Year
  Sex: Male
  Weight: 95.2 kg

DRUGS (4)
  1. XOLAIR [Suspect]
     Indication: ASTHMA
     Dates: start: 20040501
  2. ADVAIR (FLUTICASONE PROPIONATE, SALMETEROL XINAFOATE) [Concomitant]
  3. ZETIA [Concomitant]
  4. COLCHICINE [Concomitant]

REACTIONS (2)
  - BENIGN LUNG NEOPLASM [None]
  - SCAR [None]
